FAERS Safety Report 5963389-8 (Version None)
Quarter: 2008Q4

REPORT INFORMATION
  Report Type: 
  Country: None (occurrence: None)
  Receive Date: 20081124
  Receipt Date: 20081119
  Transmission Date: 20090506
  Serious: Yes (Other)
  Sender: FDA-Public Use
  Company Number: B0546918A

PATIENT
  Age: 9 Year
  Sex: Female

DRUGS (2)
  1. VALTREX [Suspect]
     Indication: HERPES ZOSTER
     Dosage: 500MG THREE TIMES PER DAY
     Route: 048
     Dates: start: 20081002, end: 20081006
  2. ARASENA-A [Concomitant]
     Route: 061

REACTIONS (1)
  - ABNORMAL BEHAVIOUR [None]
